FAERS Safety Report 8998388 (Version 1)
Quarter: 2013Q1

REPORT INFORMATION
  Report Type: Report from Study
  Country: DE (occurrence: DE)
  Receive Date: 20130103
  Receipt Date: 20130103
  Transmission Date: 20140127
  Serious: Yes (Hospitalization, Disabling)
  Sender: FDA-Public Use
  Company Number: DE-ROCHE-1175569

PATIENT
  Sex: Female
  Weight: 72 kg

DRUGS (11)
  1. ALTEPLASE [Suspect]
     Indication: PERIPHERAL ARTERIAL OCCLUSIVE DISEASE
     Dosage: 2.5 MG/H
     Route: 013
     Dates: start: 19931103, end: 19931103
  2. HEPARIN [Concomitant]
     Route: 042
     Dates: start: 19931030
  3. FORTRAL [Concomitant]
     Indication: PAIN
     Route: 058
     Dates: start: 19931026, end: 19931105
  4. PARACETAMOL [Concomitant]
     Indication: PAIN
     Route: 048
     Dates: start: 19931026, end: 19931105
  5. VALORON [Concomitant]
     Indication: PAIN
     Route: 048
     Dates: start: 11931026, end: 19931105
  6. TRAMAL [Concomitant]
     Indication: PAIN
     Route: 048
     Dates: start: 11931026, end: 11931105
  7. TRAMADOL HIDROCLORURO [Concomitant]
     Indication: PROPHYLAXIS
     Route: 042
     Dates: start: 19931103, end: 19931103
  8. ASS-100 [Concomitant]
     Route: 048
     Dates: start: 19931102, end: 19931105
  9. MODURETIK [Concomitant]
     Indication: CORONARY ARTERY DISEASE
     Route: 048
     Dates: start: 19931027
  10. CEDUR RETARD [Concomitant]
     Indication: HYPERCHOLESTEROLAEMIA
     Route: 048
     Dates: start: 11931026
  11. ISOKET RETARD [Concomitant]
     Indication: CORONARY ARTERY DISEASE
     Route: 048
     Dates: start: 11931026

REACTIONS (1)
  - Peripheral arterial occlusive disease [Recovered/Resolved with Sequelae]
